FAERS Safety Report 25415450 (Version 1)
Quarter: 2025Q2

REPORT INFORMATION
  Report Type: Spontaneous
  Country: US (occurrence: US)
  Receive Date: 20250610
  Receipt Date: 20250610
  Transmission Date: 20250716
  Serious: Yes (Other)
  Sender: Steriscience PTE
  Company Number: US-STERISCIENCE B.V.-2024-ST-001062

PATIENT

DRUGS (9)
  1. ONDANSETRON [Suspect]
     Active Substance: ONDANSETRON
     Indication: Nausea
     Route: 065
  2. ONDANSETRON [Suspect]
     Active Substance: ONDANSETRON
     Indication: Vomiting
  3. OLANZAPINE [Suspect]
     Active Substance: OLANZAPINE
     Indication: Nausea
     Route: 048
  4. OLANZAPINE [Suspect]
     Active Substance: OLANZAPINE
     Indication: Vomiting
  5. HYDROXYZINE [Suspect]
     Active Substance: HYDROXYZINE HYDROCHLORIDE
     Indication: Nausea
     Route: 065
  6. HYDROXYZINE [Suspect]
     Active Substance: HYDROXYZINE HYDROCHLORIDE
     Indication: Vomiting
  7. METOCLOPRAMIDE [Suspect]
     Active Substance: METOCLOPRAMIDE
     Indication: Nausea
     Route: 065
  8. METOCLOPRAMIDE [Suspect]
     Active Substance: METOCLOPRAMIDE
     Indication: Vomiting
  9. TRAZODONE [Concomitant]
     Active Substance: TRAZODONE HYDROCHLORIDE
     Indication: Product used for unknown indication
     Route: 065

REACTIONS (2)
  - Electrocardiogram QT prolonged [Unknown]
  - Off label use [Unknown]
